FAERS Safety Report 25261819 (Version 6)
Quarter: 2025Q3

REPORT INFORMATION
  Report Type: Report from Study
  Country: US (occurrence: US)
  Receive Date: 20250502
  Receipt Date: 20250926
  Transmission Date: 20251020
  Serious: Yes (Hospitalization, Other)
  Sender: NOVARTIS
  Company Number: US-002147023-NVSC2025US071225

PATIENT
  Sex: Male

DRUGS (2)
  1. KESIMPTA [Suspect]
     Active Substance: OFATUMUMAB
     Indication: Relapsing multiple sclerosis
     Dosage: 20 MG, QMO
     Route: 058
     Dates: start: 20250211
  2. KESIMPTA [Suspect]
     Active Substance: OFATUMUMAB
     Indication: Multiple sclerosis

REACTIONS (8)
  - Hypotension [Recovering/Resolving]
  - Heart rate increased [Unknown]
  - Optic nerve injury [Unknown]
  - Drug ineffective [Unknown]
  - Fall [Unknown]
  - Device malfunction [Unknown]
  - Device breakage [Unknown]
  - Device defective [Unknown]
